FAERS Safety Report 20376073 (Version 1)
Quarter: 2022Q1

REPORT INFORMATION
  Report Type: Spontaneous
  Country: US (occurrence: US)
  Receive Date: 20220125
  Receipt Date: 20220125
  Transmission Date: 20220424
  Serious: No
  Sender: FDA-Public Use
  Company Number: US-LANTHEUS-LMI-2021-00459

PATIENT
  Age: 62 Year
  Sex: Female
  Weight: 60 kg

DRUGS (4)
  1. CARDIOLITE [Suspect]
     Active Substance: TECHNETIUM TC-99M SESTAMIBI
     Indication: Stress echocardiogram
     Dosage: 25 MILLICURIE
     Route: 042
     Dates: start: 20041130, end: 20041130
  2. CARDIOLITE [Suspect]
     Active Substance: TECHNETIUM TC-99M SESTAMIBI
     Indication: Cardiac stress test
     Dosage: 25 MILLICURIE
     Route: 042
     Dates: start: 200412, end: 200412
  3. CELEBREX [Concomitant]
     Active Substance: CELECOXIB
     Indication: Product used for unknown indication
  4. QUINAPRIL [Concomitant]
     Active Substance: QUINAPRIL
     Indication: Hypertension

REACTIONS (5)
  - Skin procedural complication [Recovering/Resolving]
  - Vaginal haemorrhage [Recovered/Resolved]
  - Vaginal discharge [Recovered/Resolved]
  - Asthenia [Recovered/Resolved]
  - Fatigue [Recovered/Resolved]

NARRATIVE: CASE EVENT DATE: 20041201
